FAERS Safety Report 17013095 (Version 1)
Quarter: 2019Q4

REPORT INFORMATION
  Report Type: Spontaneous
  Country: US (occurrence: US)
  Receive Date: 20191001
  Receipt Date: 20191001
  Transmission Date: 20200122
  Serious: Yes (Hospitalization)
  Sender: FDA-Public Use
  Company Number: None

PATIENT
  Age: 71 Year
  Sex: Female

DRUGS (7)
  1. PRIMIDONE. [Concomitant]
     Active Substance: PRIMIDONE
  2. ROSUVASTATIN. [Concomitant]
     Active Substance: ROSUVASTATIN
  3. TACROLIMUS 1MG [Suspect]
     Active Substance: TACROLIMUS
     Route: 048
  4. PREDNSIONE [Concomitant]
  5. MYCOPHENOLATEM [Concomitant]
  6. FAMOTIDINE. [Concomitant]
     Active Substance: FAMOTIDINE
  7. ROPINEROLE [Concomitant]
     Active Substance: ROPINIROLE

REACTIONS (1)
  - Hospitalisation [None]
